FAERS Safety Report 5416603-1 (Version None)
Quarter: 2007Q3

REPORT INFORMATION
  Report Type: 
  Country: None (occurrence: None)
  Receive Date: 20070816
  Receipt Date: 20070809
  Transmission Date: 20080115
  Serious: Yes (Death, Hospitalization)
  Sender: FDA-Public Use
  Company Number: PHHO2007BE13361

PATIENT
  Age: 64 Year
  Sex: Female
  Weight: 82 kg

DRUGS (10)
  1. EXJADE [Suspect]
     Indication: IRON OVERLOAD
     Dosage: 1625 MG, QD
     Route: 048
     Dates: start: 20070202
  2. GLUCOPHAGE [Concomitant]
  3. BISOPROLOL [Concomitant]
  4. LEVOTHYROXINE SODIUM [Concomitant]
  5. ALDACTONE [Concomitant]
  6. BURINEX [Concomitant]
  7. MARCUMAR [Concomitant]
  8. LIPITOR [Concomitant]
  9. ACCUPRIL [Concomitant]
  10. ZOLPIDEM [Concomitant]

REACTIONS (10)
  - CIRCULATORY COLLAPSE [None]
  - DIARRHOEA [None]
  - DISSEMINATED INTRAVASCULAR COAGULATION [None]
  - ESCHERICHIA SEPSIS [None]
  - HEADACHE [None]
  - HYPERKALAEMIA [None]
  - MALAISE [None]
  - MUSCULOSKELETAL STIFFNESS [None]
  - PYREXIA [None]
  - RENAL FAILURE ACUTE [None]
